FAERS Safety Report 11150583 (Version 1)
Quarter: 2015Q2

REPORT INFORMATION
  Report Type: Spontaneous
  Country: FR (occurrence: FR)
  Receive Date: 20150601
  Receipt Date: 20150601
  Transmission Date: 20150821
  Serious: Yes (Hospitalization)
  Sender: FDA-Public Use
  Company Number: FR-UCBSA-2015017212

PATIENT
  Age: 12 Month
  Sex: Female

DRUGS (8)
  1. KEPPRA [Suspect]
     Active Substance: LEVETIRACETAM
     Indication: PRODUCT USED FOR UNKNOWN INDICATION
     Dosage: 0.8 ML, 2X/DAY (BID)
     Route: 048
     Dates: start: 20150211, end: 201502
  2. KEPPRA [Suspect]
     Active Substance: LEVETIRACETAM
     Dosage: 8 ML, 2X/DAY (BID)
     Route: 048
     Dates: start: 20150222, end: 2015
  3. AMOXICILLINE [Concomitant]
     Active Substance: AMOXICILLIN
     Indication: PRODUCT USED FOR UNKNOWN INDICATION
     Dosage: UNK
  4. FOLIC ACID. [Concomitant]
     Active Substance: FOLIC ACID
     Indication: ANAEMIA NEONATAL
     Dosage: UNK
  5. VANCOMYCINE [Concomitant]
     Active Substance: VANCOMYCIN
     Indication: PRODUCT USED FOR UNKNOWN INDICATION
     Dosage: UNK
  6. NEORECORMON [Concomitant]
     Active Substance: ERYTHROPOIETIN
     Indication: ANAEMIA NEONATAL
     Dosage: UNK
  7. PHENOBARBITAL. [Concomitant]
     Active Substance: PHENOBARBITAL
     Indication: CENTRAL NERVOUS SYSTEM LESION
     Dosage: UNK
  8. IRON [Concomitant]
     Active Substance: IRON
     Indication: ANAEMIA NEONATAL
     Dosage: UNK

REACTIONS (7)
  - Somnolence [Recovered/Resolved]
  - Tachypnoea [Unknown]
  - Medication error [Unknown]
  - Asthenia [Recovered/Resolved]
  - Decreased appetite [Unknown]
  - Nystagmus [Unknown]
  - Overdose [Unknown]

NARRATIVE: CASE EVENT DATE: 20150222
